FAERS Safety Report 9098099 (Version 2)
Quarter: 2013Q1

REPORT INFORMATION
  Report Type: Spontaneous
  Country: JP (occurrence: JP)
  Receive Date: 20130213
  Receipt Date: 20130221
  Transmission Date: 20140127
  Serious: No
  Sender: FDA-Public Use
  Company Number: JP-PFIZER INC-2013053307

PATIENT
  Age: 17 Year
  Sex: Female

DRUGS (1)
  1. ZITHROMAC [Suspect]
     Indication: UPPER RESPIRATORY TRACT INFECTION
     Dosage: 500 MG, 1X/DAY
     Route: 048
     Dates: start: 20130206, end: 20130207

REACTIONS (1)
  - Dizziness [Unknown]
